FAERS Safety Report 18004422 (Version 2)
Quarter: 2020Q4

REPORT INFORMATION
  Report Type: Report from Study
  Country: NL (occurrence: NL)
  Receive Date: 20200709
  Receipt Date: 20201006
  Transmission Date: 20210113
  Serious: Yes (Other)
  Sender: FDA-Public Use
  Company Number: NL-MYLANLABS-2020M1062078

PATIENT
  Age: 71 Year
  Sex: Female

DRUGS (13)
  1. SYMMETREL [Concomitant]
     Active Substance: AMANTADINE HYDROCHLORIDE
     Indication: PARKINSON^S DISEASE
     Dosage: UNK
  2. MOVICOLON [Concomitant]
     Active Substance: POLYETHYLENE GLYCOL 3350\POTASSIUM CHLORIDE\SODIUM BICARBONATE\SODIUM CHLORIDE
     Indication: ABNORMAL FAECES
     Dosage: IF NEEDED
     Dates: start: 20191207
  3. PRAMIPEXOLE. [Suspect]
     Active Substance: PRAMIPEXOLE
     Indication: PRODUCT USED FOR UNKNOWN INDICATION
     Dosage: UNK
     Route: 065
  4. DUODOPA [Suspect]
     Active Substance: CARBIDOPA\LEVODOPA
     Dosage: 9.3ML
     Route: 050
     Dates: start: 2019, end: 2019
  5. DUODOPA [Suspect]
     Active Substance: CARBIDOPA\LEVODOPA
     Dosage: MD: 8.0, CD: 5.1, ED: 4.5; 16 HOUR ADMINISTRATION
     Route: 050
  6. SINEMET [Concomitant]
     Active Substance: CARBIDOPA\LEVODOPA
     Indication: PRODUCT USED FOR UNKNOWN INDICATION
     Dosage: 2 DOSAGE FORM
  7. SIFROL [Concomitant]
     Active Substance: PRAMIPEXOLE
     Indication: PARKINSON^S DISEASE
     Dosage: UNK
  8. DUODOPA [Suspect]
     Active Substance: CARBIDOPA\LEVODOPA
     Dosage: MD-8.8ML
     Route: 050
     Dates: start: 2019, end: 201912
  9. LACTULOSUM [Concomitant]
     Indication: ABNORMAL FAECES
     Dosage: UNK
  10. DULCOSOFT [Concomitant]
     Indication: ABNORMAL FAECES
     Dosage: UNK
  11. DUODOPA [Suspect]
     Active Substance: CARBIDOPA\LEVODOPA
     Indication: PARKINSON^S DISEASE
     Dosage: MD 9.5 ML
     Route: 050
     Dates: start: 20190513, end: 2019
  12. DUODOPA [Suspect]
     Active Substance: CARBIDOPA\LEVODOPA
     Dosage: MD 8.0, CD 5.0, ED 4.5
     Route: 050
     Dates: start: 201912
  13. DUODOPA [Suspect]
     Active Substance: CARBIDOPA\LEVODOPA
     Dosage: MD DECREASED
     Route: 050
     Dates: start: 201912, end: 201912

REACTIONS (35)
  - Adverse drug reaction [Not Recovered/Not Resolved]
  - Drug ineffective [Unknown]
  - Fall [Not Recovered/Not Resolved]
  - Malaise [Not Recovered/Not Resolved]
  - Anxiety [Not Recovered/Not Resolved]
  - Confusional state [Not Recovered/Not Resolved]
  - Abnormal dreams [Unknown]
  - Depression [Not Recovered/Not Resolved]
  - On and off phenomenon [Unknown]
  - Gait disturbance [Not Recovered/Not Resolved]
  - Nausea [Not Recovered/Not Resolved]
  - Weight decreased [Not Recovered/Not Resolved]
  - Depressed mood [Not Recovered/Not Resolved]
  - Device dislocation [Unknown]
  - Somnolence [Not Recovered/Not Resolved]
  - Sleep disorder [Not Recovered/Not Resolved]
  - Pain in extremity [Not Recovered/Not Resolved]
  - Feeding disorder [Not Recovered/Not Resolved]
  - Stress [Not Recovered/Not Resolved]
  - Muscular weakness [Not Recovered/Not Resolved]
  - Dyskinesia [Recovered/Resolved]
  - Obsessive-compulsive disorder [Not Recovered/Not Resolved]
  - Therapeutic product effect incomplete [Recovered/Resolved]
  - Freezing phenomenon [Not Recovered/Not Resolved]
  - Listless [Not Recovered/Not Resolved]
  - Dyschezia [Recovering/Resolving]
  - Cognitive disorder [Unknown]
  - Muscle rigidity [Not Recovered/Not Resolved]
  - Contusion [Not Recovered/Not Resolved]
  - Hypophagia [Unknown]
  - Movement disorder [Not Recovered/Not Resolved]
  - Tremor [Unknown]
  - Hyperhidrosis [Unknown]
  - Memory impairment [Not Recovered/Not Resolved]
  - Arthralgia [Not Recovered/Not Resolved]

NARRATIVE: CASE EVENT DATE: 2019
